FAERS Safety Report 23462018 (Version 2)
Quarter: 2024Q2

REPORT INFORMATION
  Report Type: Report from Study
  Country: US (occurrence: US)
  Receive Date: 20240131
  Receipt Date: 20240404
  Transmission Date: 20240715
  Serious: Yes (Other)
  Sender: FDA-Public Use
  Company Number: US-ABBVIE-5616401

PATIENT
  Age: 59 Year
  Sex: Male
  Weight: 89 kg

DRUGS (13)
  1. RINVOQ [Suspect]
     Active Substance: UPADACITINIB
     Indication: Colitis ulcerative
     Dosage: LAST ADMIN DATE: 2022
     Route: 048
     Dates: start: 20220401
  2. RINVOQ [Suspect]
     Active Substance: UPADACITINIB
     Indication: Colitis ulcerative
     Dosage: FORM STRENGTH: 30MG
     Route: 048
     Dates: start: 202208
  3. ZOLPIDEM TARTRATE [Concomitant]
     Active Substance: ZOLPIDEM TARTRATE
     Indication: Product used for unknown indication
     Dosage: TAKE 1 TABLET AT BEDTIME AS NEEDED FOR SLEEP?FORM STRENGTH: 12.5MG
     Route: 048
     Dates: start: 20220211
  4. FINASTERIDE [Concomitant]
     Active Substance: FINASTERIDE
     Indication: Product used for unknown indication
     Dosage: FORM STRENGTH: 1MG
     Route: 048
  5. ARNUITY ELLIPTA [Concomitant]
     Active Substance: FLUTICASONE FUROATE
     Indication: Product used for unknown indication
     Dosage: AEROSOL POWDER BREATH ACTIVATED, INHALE 1 PUFF BY MOUTH EVERY DAY?FORM STRENGTH: 100 MICROGRAM
     Route: 048
     Dates: start: 20191101
  6. NALTREXONE HYDROCHLORIDE [Concomitant]
     Active Substance: NALTREXONE HYDROCHLORIDE
     Indication: Product used for unknown indication
     Dosage: FORM STRENGTH: 50MG
     Route: 048
     Dates: start: 20230822
  7. CLONAZEPAM [Concomitant]
     Active Substance: CLONAZEPAM
     Indication: Product used for unknown indication
     Dosage: FORM STRENGTH: 0.5MG
     Route: 048
  8. ATORVASTATIN CALCIUM [Concomitant]
     Active Substance: ATORVASTATIN CALCIUM
     Indication: Product used for unknown indication
     Route: 048
     Dates: start: 20230131
  9. CALCIUM\VITAMIN D [Concomitant]
     Active Substance: CALCIUM\VITAMIN D
     Indication: Product used for unknown indication
     Dosage: CALCIUM 1000 + D 1000-20 MG-MCG
     Route: 048
     Dates: start: 20230210
  10. MELOXICAM [Concomitant]
     Active Substance: MELOXICAM
     Indication: Product used for unknown indication
     Dosage: FORM STRENGTH: 15MG
     Route: 048
     Dates: start: 20240314
  11. ALBUTEROL SULFATE [Concomitant]
     Active Substance: ALBUTEROL SULFATE
     Indication: Product used for unknown indication
     Dosage: INHALATION AEROSOL SOLUTION/ INHALE 1 TO 2 PUFFS BY MOUTH EVERY 4 TO 6 HOURS AS NEEDED
     Dates: start: 20230131
  12. GABAPENTIN [Concomitant]
     Active Substance: GABAPENTIN
     Indication: Product used for unknown indication
     Dosage: 1 IN AFTERNOON, 2 IN EVENING?FORM STRENGTH: 300MG
     Route: 048
     Dates: start: 20220803
  13. OMEPRAZOLE [Concomitant]
     Active Substance: OMEPRAZOLE
     Indication: Product used for unknown indication
     Dosage: FORM STRENGTH: 20MG
     Route: 048

REACTIONS (10)
  - Cataract [Unknown]
  - Stress [Recovered/Resolved]
  - Colitis ulcerative [Not Recovered/Not Resolved]
  - Balance disorder [Not Recovered/Not Resolved]
  - Colitis ulcerative [Recovered/Resolved]
  - Lacrimation increased [Unknown]
  - Vein disorder [Recovered/Resolved]
  - Clostridium difficile infection [Unknown]
  - Alcohol abuse [Unknown]
  - Arthralgia [Unknown]

NARRATIVE: CASE EVENT DATE: 20230901
